FAERS Safety Report 11626886 (Version 1)
Quarter: 2015Q4

REPORT INFORMATION
  Report Type: Spontaneous
  Country: PL (occurrence: PL)
  Receive Date: 20151013
  Receipt Date: 20151013
  Transmission Date: 20160304
  Serious: Yes (Other)
  Sender: FDA-Public Use
  Company Number: PL-UCBSA-2015031888

PATIENT
  Sex: Male
  Weight: 4.6 kg

DRUGS (12)
  1. VIMPAT [Suspect]
     Active Substance: LACOSAMIDE
     Indication: SEIZURE
     Dosage: 150 MG, 2X/DAY (BID)
     Route: 064
     Dates: start: 201412, end: 201503
  2. CARBAMAZEPINE. [Concomitant]
     Active Substance: CARBAMAZEPINE
     Indication: SEIZURE
     Dosage: UNKNOWN DOSE
  3. TIAGABINE [Concomitant]
     Active Substance: TIAGABINE
     Indication: SEIZURE
     Dosage: UNKNOWN DOSE
  4. TOPIRAMATE. [Concomitant]
     Active Substance: TOPIRAMATE
     Indication: SEIZURE
     Dosage: UNKNOWN DOSE
  5. LEVETIRACETAM. [Concomitant]
     Active Substance: LEVETIRACETAM
     Dosage: UNK
  6. VIGABATRIN [Concomitant]
     Active Substance: VIGABATRIN
     Indication: SEIZURE
     Dosage: UNKNOWN DOSE
  7. NEUROTOP [Concomitant]
     Active Substance: CARBAMAZEPINE
     Dosage: 300 MG, ONCE DAILY (QD)
     Route: 064
     Dates: start: 201412, end: 20150908
  8. CARBAMAZEPINE. [Concomitant]
     Active Substance: CARBAMAZEPINE
     Dosage: 900 MG/DAY
  9. LEVETIRACETAM. [Concomitant]
     Active Substance: LEVETIRACETAM
     Indication: SEIZURE
     Dosage: UNKNOWN DOSE
     Route: 064
  10. LEVETIRACETAM. [Concomitant]
     Active Substance: LEVETIRACETAM
     Dosage: 3000 MG/DAY
  11. LEVETIRACETAM. [Concomitant]
     Active Substance: LEVETIRACETAM
     Dosage: 1500 MG, 2X/DAY (BID)
     Dates: start: 2010
  12. NEUROTOP [Concomitant]
     Active Substance: CARBAMAZEPINE
     Indication: PRODUCT USED FOR UNKNOWN INDICATION
     Dosage: 600 MG, ONCE DAILY (QD)
     Route: 064
     Dates: start: 201412, end: 20150908

REACTIONS (3)
  - Premature baby [Unknown]
  - Foetal exposure during pregnancy [Unknown]
  - Contusion [Unknown]

NARRATIVE: CASE EVENT DATE: 20150908
